FAERS Safety Report 10214591 (Version 1)
Quarter: 2014Q2

REPORT INFORMATION
  Report Type: Spontaneous
  Country: US (occurrence: None)
  Receive Date: 20140602
  Receipt Date: 20140602
  Transmission Date: 20141212
  Serious: Yes (Hospitalization)
  Sender: FDA-Public Use
  Company Number: None

PATIENT
  Age: 73 Year
  Sex: Female

DRUGS (5)
  1. FORTEO [Suspect]
     Indication: SENILE OSTEOPOROSIS
     Route: 048
     Dates: start: 20140308
  2. PLAVIX [Concomitant]
  3. NORCO [Concomitant]
  4. PRAVACHOL [Concomitant]
  5. ZANAFLEX [Concomitant]

REACTIONS (3)
  - Fall [None]
  - Hip fracture [None]
  - Ankle fracture [None]
